FAERS Safety Report 6600251-1 (Version None)
Quarter: 2010Q1

REPORT INFORMATION
  Report Type: 
  Country: None (occurrence: None)
  Receive Date: 20100217
  Receipt Date: 20100202
  Transmission Date: 20100710
  Serious: Yes (Hospitalization)
  Sender: FDA-Public Use
  Company Number: DSA_42552_2010

PATIENT
  Age: 62 Year
  Sex: Male

DRUGS (8)
  1. ENALAPRIL MALEATE [Suspect]
     Indication: HYPERTENSION
     Dosage: 5 MG QD ORAL
     Route: 048
     Dates: start: 20040901
  2. ENALAPRIL PLUS (ENALAPRIL PLUS-ENALAPRIL MALEATE-HCTZ) (NOT SPECIFIED) [Suspect]
     Indication: HYPERTENSION
     Dosage: DOSE: 10 MG / 25 MG DAILY ORAL
     Route: 048
     Dates: start: 20040901
  3. ELIGARD (ELIGARD - LEUPROLIDE ACETATE) [Suspect]
     Indication: PROSTATE CANCER
     Dosage: 22.5 MG  1X/3 MONTHS SUBCUTANEOUS
     Route: 058
     Dates: start: 20090801, end: 20091108
  4. BICALUTAMIDE [Suspect]
     Indication: PROSTATE CANCER
     Dosage: 50 MG QD ORAL
     Route: 048
     Dates: start: 20090801, end: 20091110
  5. BISOPROLOL FUMARATE [Suspect]
     Indication: HYPERTENSION
     Dosage: 5 MG/KG QD ORAL
     Route: 048
     Dates: start: 20040901
  6. ASPIRIN [Concomitant]
  7. CARBAMAZEPINE [Concomitant]
  8. IBUPROFEN [Concomitant]

REACTIONS (12)
  - AMAUROSIS [None]
  - ATRIOVENTRICULAR BLOCK FIRST DEGREE [None]
  - BLOOD POTASSIUM DECREASED [None]
  - BLOOD PRESSURE DECREASED [None]
  - CONDITION AGGRAVATED [None]
  - DISEASE RECURRENCE [None]
  - DRUG INTERACTION [None]
  - EAR DISCOMFORT [None]
  - HAEMATOCRIT DECREASED [None]
  - HAEMOGLOBIN DECREASED [None]
  - SYNCOPE [None]
  - VERTIGO [None]
